FAERS Safety Report 5182903-6 (Version None)
Quarter: 2006Q4

REPORT INFORMATION
  Report Type: 
  Country: None (occurrence: None)
  Receive Date: 20061220
  Receipt Date: 20061212
  Transmission Date: 20070319
  Serious: Yes (Other)
  Sender: FDA-Public Use
  Company Number: GB-SANOFI-SYNTHELABO-A01200610791

PATIENT
  Sex: Female

DRUGS (3)
  1. VALPROATE SODIUM [Concomitant]
     Dosage: UNK
  2. ELOXATIN [Suspect]
     Indication: RECTAL CANCER
     Dosage: UNK
     Route: 042
  3. OMEPRAZOLE [Concomitant]
     Dosage: UNK

REACTIONS (1)
  - EPILEPSY [None]
